FAERS Safety Report 8962715 (Version 1)
Quarter: 2012Q4

REPORT INFORMATION
  Report Type: Spontaneous
  Country: GB (occurrence: None)
  Receive Date: 20121206
  Receipt Date: 20121206
  Transmission Date: 20130627
  Serious: Yes (Other)
  Sender: FDA-Public Use
  Company Number: 2012AP004085

PATIENT
  Age: 54 Year
  Sex: Female

DRUGS (8)
  1. RAMIPRIL (RAMIPRIL) [Suspect]
     Indication: DRUG USE FOR UNKNOWN INDICATION
     Dates: start: 20120928
  2. AMLODIPINE (AMLODIPINE) [Concomitant]
  3. AMOXICILLIN (AMOXICILLIN) [Concomitant]
  4. ASPIRIN (ACETYLSALICYLIC ACID) [Concomitant]
  5. DIAZEPAM (DIAZEPAM) [Concomitant]
  6. DOXYCYCLINE (DOXYCYCLINE) [Concomitant]
  7. OMEPRAZOLE (OMEPRAZOLE) [Concomitant]
  8. TRAMADOL (TRAMADOL) [Concomitant]

REACTIONS (1)
  - Vomiting [None]
